FAERS Safety Report 7551355-0 (Version None)
Quarter: 2011Q2

REPORT INFORMATION
  Report Type: 
  Country: None (occurrence: None)
  Receive Date: 20110616
  Receipt Date: 20110607
  Transmission Date: 20111010
  Serious: Yes (Other)
  Sender: FDA-Public Use
  Company Number: US-ROCHE-735835

PATIENT
  Sex: Female
  Weight: 72.6 kg

DRUGS (4)
  1. ACCUTANE [Suspect]
     Route: 065
     Dates: start: 19990802
  2. ACCUTANE [Suspect]
     Route: 065
     Dates: start: 19991005, end: 19991206
  3. ACCUTANE [Suspect]
     Indication: ACNE
     Route: 065
     Dates: start: 19990602
  4. ACCUTANE [Suspect]
     Route: 065
     Dates: end: 20000531

REACTIONS (6)
  - LIP DRY [None]
  - HAEMORRHOIDS [None]
  - GASTROINTESTINAL INJURY [None]
  - INFLAMMATORY BOWEL DISEASE [None]
  - COLITIS ULCERATIVE [None]
  - BACK PAIN [None]
